FAERS Safety Report 5387068-3 (Version None)
Quarter: 2007Q3

REPORT INFORMATION
  Report Type: 
  Country: None (occurrence: None)
  Receive Date: 20070710
  Receipt Date: 20070627
  Transmission Date: 20080115
  Serious: Yes (Other)
  Sender: FDA-Public Use
  Company Number: 158175USA

PATIENT
  Age: 26 Year
  Sex: Female

DRUGS (5)
  1. BUPROPION HCL [Suspect]
  2. ALPRAZOLAM [Suspect]
  3. ARIPIPRAZOLE [Suspect]
  4. TOPIRAMATE [Suspect]
  5. PREGABALIN [Suspect]

REACTIONS (2)
  - NEUROLEPTIC MALIGNANT SYNDROME [None]
  - THERAPY REGIMEN CHANGED [None]
